FAERS Safety Report 7553077-9 (Version None)
Quarter: 2011Q2

REPORT INFORMATION
  Report Type: 
  Country: None (occurrence: None)
  Receive Date: 20110616
  Receipt Date: 20110613
  Transmission Date: 20111010
  Serious: Yes (Other)
  Sender: FDA-Public Use
  Company Number: US-RB-028798-11

PATIENT
  Age: 32 Year
  Sex: Male

DRUGS (3)
  1. SUBOXONE [Suspect]
     Indication: DRUG DEPENDENCE
     Dosage: SUBLINGUAL FILM
     Route: 060
     Dates: start: 20110607
  2. SUBOXONE [Suspect]
     Indication: PRODUCT USED FOR UNKNOWN INDICATION
     Dosage: UNKNOWN DOSING DETAILS
     Route: 065
  3. SUBOXONE [Suspect]
     Dosage: SUBLINGUAL FILM
     Route: 060
     Dates: start: 20110601, end: 20110606

REACTIONS (12)
  - VOMITING [None]
  - DELIRIUM [None]
  - OFF LABEL USE [None]
  - MIGRAINE [None]
  - FATIGUE [None]
  - DIZZINESS [None]
  - NAUSEA [None]
  - HEADACHE [None]
  - DECREASED APPETITE [None]
  - DRUG WITHDRAWAL SYNDROME [None]
  - ASTHENIA [None]
  - SOMNOLENCE [None]
